FAERS Safety Report 4924640-6 (Version None)
Quarter: 2006Q1

REPORT INFORMATION
  Report Type: 
  Country: None (occurrence: None)
  Receive Date: 20060222
  Receipt Date: 20060213
  Transmission Date: 20060701
  Serious: Yes (Hospitalization)
  Sender: FDA-Public Use
  Company Number: 805#1#2006-00007

PATIENT
  Age: 55 Year
  Sex: Male

DRUGS (7)
  1. ALPROSTADIL [Suspect]
     Indication: HYPOTENSION
     Dosage: 840 MCG INTRAVENOUS DRIP
     Route: 041
     Dates: start: 20060116, end: 20060116
  2. SEVOFLURANE [Concomitant]
  3. FENTANYL CITRATE [Concomitant]
  4. VECURONIUM BROMIDE [Concomitant]
  5. ROPION (FLURBIPROFEN AXETIL) [Concomitant]
  6. VEEN-F (CALCIUM CHLORIDE ANHYDROUS, MAGNESIUM CHLORIDE ANHYDROUS, POTA [Concomitant]
  7. PROPOFOL [Concomitant]

REACTIONS (4)
  - INJECTION SITE ANAESTHESIA [None]
  - INJECTION SITE EXTRAVASATION [None]
  - INJECTION SITE INFLAMMATION [None]
  - INJECTION SITE SWELLING [None]
